FAERS Safety Report 17523678 (Version 1)
Quarter: 2020Q1

REPORT INFORMATION
  Report Type: Spontaneous
  Country: GB (occurrence: GB)
  Receive Date: 20200310
  Receipt Date: 20200310
  Transmission Date: 20200409
  Serious: Yes (Disabling)
  Sender: FDA-Public Use
  Company Number: GB-TEVA-2020-GB-1196335

PATIENT
  Age: 53 Year
  Sex: Male
  Weight: 77 kg

DRUGS (2)
  1. LANSOPRAZOLE. [Concomitant]
     Active Substance: LANSOPRAZOLE
  2. VENLAFAXINE [Suspect]
     Active Substance: VENLAFAXINE HYDROCHLORIDE
     Indication: DEPRESSION
     Dosage: 325 MG
     Route: 048
     Dates: start: 20190216

REACTIONS (2)
  - Anorgasmia [Not Recovered/Not Resolved]
  - Loss of libido [Unknown]

NARRATIVE: CASE EVENT DATE: 20190520
